FAERS Safety Report 5630078-9 (Version None)
Quarter: 2008Q1

REPORT INFORMATION
  Report Type: 
  Country: None (occurrence: None)
  Receive Date: 20080218
  Receipt Date: 20080214
  Transmission Date: 20080703
  Serious: Yes (Other)
  Sender: FDA-Public Use
  Company Number: PHEH2008US00811

PATIENT
  Sex: Female

DRUGS (2)
  1. ENABLEX [Suspect]
     Indication: HYPERTONIC BLADDER
     Dosage: 7.5 MG, UNK
     Route: 048
     Dates: end: 20080101
  2. NEXIUM [Concomitant]
     Indication: GASTRIC ULCER
     Dosage: 40 MG, QD
     Route: 048

REACTIONS (3)
  - BURNING SENSATION [None]
  - GASTRIC ULCER [None]
  - STOMACH DISCOMFORT [None]
